FAERS Safety Report 20231500 (Version 1)
Quarter: 2021Q4

REPORT INFORMATION
  Report Type: Report from Study
  Country: GB (occurrence: GB)
  Receive Date: 20211227
  Receipt Date: 20211227
  Transmission Date: 20220303
  Serious: Yes (Other)
  Sender: FDA-Public Use
  Company Number: GB-NOVARTISPH-NVSC2021GB140841

PATIENT
  Sex: Male

DRUGS (1)
  1. OMNITROPE [Suspect]
     Active Substance: SOMATROPIN
     Indication: Growth hormone deficiency
     Dosage: 1.4 MG, QD (NOCTE)
     Route: 058

REACTIONS (4)
  - Autism spectrum disorder [Unknown]
  - Mood altered [Unknown]
  - Product dose omission issue [Unknown]
  - Injection site pain [Unknown]
